FAERS Safety Report 24900371 (Version 2)
Quarter: 2025Q1

REPORT INFORMATION
  Report Type: Spontaneous
  Country: US (occurrence: US)
  Receive Date: 20250129
  Receipt Date: 20250219
  Transmission Date: 20250409
  Serious: Yes (Hospitalization)
  Sender: DR REDDYS
  Company Number: US-DRL-USA-USA/2025/01/001424

PATIENT
  Age: 33 Year
  Sex: Male

DRUGS (1)
  1. CLOZAPINE [Suspect]
     Active Substance: CLOZAPINE
     Indication: Schizophrenia
     Dosage: LAST PRESCRIPTION GIVEN ON 12-DEC-2024
     Route: 048

REACTIONS (3)
  - Asthma [Recovered/Resolved]
  - Influenza [Recovered/Resolved]
  - Acute kidney injury [Recovered/Resolved]
